FAERS Safety Report 18772251 (Version 1)
Quarter: 2021Q1

REPORT INFORMATION
  Report Type: Spontaneous
  Country: US (occurrence: US)
  Receive Date: 20210121
  Receipt Date: 20210121
  Transmission Date: 20210419
  Serious: No
  Sender: FDA-Public Use
  Company Number: US-ELI_LILLY_AND_COMPANY-US202101007099

PATIENT
  Sex: Female

DRUGS (19)
  1. HUMALOG [Suspect]
     Active Substance: INSULIN LISPRO
     Dosage: 14 INTERNATIONAL UNIT, DAILYAT LUNCH
     Route: 058
  2. HUMALOG [Suspect]
     Active Substance: INSULIN LISPRO
     Dosage: 14 INTERNATIONAL UNIT, DAILY AT LUNCH
     Route: 058
  3. HUMALOG [Suspect]
     Active Substance: INSULIN LISPRO
     Dosage: 14 INTERNATIONAL UNIT, DAILY AT LUNCH
     Route: 058
  4. HUMALOG [Suspect]
     Active Substance: INSULIN LISPRO
     Dosage: 8?10 INTERNATIONAL UNIT, DAILY AT NIGHT
     Route: 058
  5. HUMALOG [Suspect]
     Active Substance: INSULIN LISPRO
     Dosage: 14 INTERNATIONAL UNIT, DAILYAT LUNCH
     Route: 058
  6. HUMALOG [Suspect]
     Active Substance: INSULIN LISPRO
     Dosage: 14 INTERNATIONAL UNIT, DAILY AT LUNCH
     Route: 058
  7. HUMALOG [Suspect]
     Active Substance: INSULIN LISPRO
     Dosage: 14?15 INTERNATIONAL UNIT, EACH MORNING
     Route: 058
  8. LANTUS [Concomitant]
     Active Substance: INSULIN GLARGINE
     Indication: DIABETES MELLITUS
  9. HUMALOG [Suspect]
     Active Substance: INSULIN LISPRO
     Dosage: 8?10 INTERNATIONAL UNIT, DAILY AT NIGHT
     Route: 058
  10. HUMALOG [Suspect]
     Active Substance: INSULIN LISPRO
     Dosage: 14?15 INTERNATIONAL UNIT, EACH MORNING
     Route: 058
  11. HUMALOG [Suspect]
     Active Substance: INSULIN LISPRO
     Indication: DIABETES MELLITUS
     Dosage: 14?15 INTERNATIONAL UNIT, EACH MORNING
     Route: 058
  12. HUMALOG [Suspect]
     Active Substance: INSULIN LISPRO
     Dosage: 8?10 INTERNATIONAL UNIT, DAILY AT NIGHT
     Route: 058
  13. HUMALOG [Suspect]
     Active Substance: INSULIN LISPRO
     Dosage: 14?15 INTERNATIONAL UNIT, EACH MORNING
     Route: 058
  14. HUMALOG [Suspect]
     Active Substance: INSULIN LISPRO
     Dosage: 8?10 INTERNATIONAL UNIT, DAILY AT NIGHT
     Route: 058
  15. HUMALOG [Suspect]
     Active Substance: INSULIN LISPRO
     Dosage: 14 INTERNATIONAL UNIT, DAILY AT LUNCH
     Route: 058
  16. HUMALOG [Suspect]
     Active Substance: INSULIN LISPRO
     Dosage: 14?15 INTERNATIONAL UNIT, EACH MORNING
     Route: 058
  17. HUMALOG [Suspect]
     Active Substance: INSULIN LISPRO
     Dosage: 8?10 INTERNATIONAL UNIT, DAILY AT NIGHT
     Route: 058
  18. HUMALOG [Suspect]
     Active Substance: INSULIN LISPRO
     Dosage: 14?15 INTERNATIONAL UNIT, EACH MORNING
     Route: 058
  19. HUMALOG [Suspect]
     Active Substance: INSULIN LISPRO
     Dosage: 8?10 INTERNATIONAL UNIT, DAILY AT NIGHT
     Route: 058

REACTIONS (4)
  - Gastrooesophageal reflux disease [Recovering/Resolving]
  - Dyspepsia [Recovering/Resolving]
  - Expired product administered [Unknown]
  - Intentional product use issue [Unknown]
